FAERS Safety Report 6597962-3 (Version None)
Quarter: 2010Q1

REPORT INFORMATION
  Report Type: 
  Country: None (occurrence: None)
  Receive Date: 20100223
  Receipt Date: 20100215
  Transmission Date: 20100710
  Serious: Yes (Hospitalization)
  Sender: FDA-Public Use
  Company Number: GB-AMGEN-US392592

PATIENT
  Sex: Male
  Weight: 117 kg

DRUGS (6)
  1. ENBREL [Suspect]
     Indication: PSORIASIS
     Route: 058
     Dates: start: 20080515, end: 20091215
  2. METHOTREXATE [Suspect]
     Indication: PSORIASIS
     Dosage: 2.5-10MG PER WEEK
     Route: 048
     Dates: end: 20091215
  3. TRAMADOL HCL [Concomitant]
     Indication: ARTHRITIS
     Route: 048
  4. CANDESARTAN [Concomitant]
     Indication: HYPERTENSION
     Route: 048
  5. LEVOTHYROXINE SODIUM [Concomitant]
     Indication: HYPOTHYROIDISM
     Route: 048
     Dates: start: 20091101
  6. WARFARIN SODIUM [Concomitant]
     Indication: PSORIASIS
     Dosage: UNKNOWN

REACTIONS (4)
  - LIVER FUNCTION TEST ABNORMAL [None]
  - PNEUMOTHORAX [None]
  - POST PROCEDURAL COMPLICATION [None]
  - PULMONARY EMBOLISM [None]
